FAERS Safety Report 9784310 (Version 1)
Quarter: 2013Q4

REPORT INFORMATION
  Report Type: Spontaneous
  Country: US (occurrence: US)
  Receive Date: 20131226
  Receipt Date: 20131226
  Transmission Date: 20140711
  Serious: No
  Sender: FDA-Public Use
  Company Number: US-BIOGENIDEC-2013BI122481

PATIENT
  Age: 51 Year
  Sex: Female

DRUGS (14)
  1. TECFIDERA [Suspect]
     Indication: MULTIPLE SCLEROSIS
     Route: 048
     Dates: start: 20131021, end: 20131028
  2. TECFIDERA [Suspect]
     Indication: MULTIPLE SCLEROSIS
     Route: 048
     Dates: start: 20131029
  3. ATENOLOL [Concomitant]
  4. PRILOSEC [Concomitant]
  5. NITROSTAT [Concomitant]
  6. VINPOCETINE [Concomitant]
  7. CYANOCOBALAMIN [Concomitant]
  8. AVONEX [Concomitant]
  9. IRON [Concomitant]
  10. VITAMIN D [Concomitant]
  11. ASPIRIN [Concomitant]
  12. VITAMIN A [Concomitant]
  13. XALATAN [Concomitant]
  14. NASONEX [Concomitant]

REACTIONS (1)
  - Abnormal dreams [Unknown]
